FAERS Safety Report 18738400 (Version 10)
Quarter: 2024Q1

REPORT INFORMATION
  Report Type: Other
  Country: CA (occurrence: None)
  Receive Date: 20210113
  Receipt Date: 20240126
  Transmission Date: 20240410
  Serious: No
  Sender: FDA-Public Use
  Company Number: CA-ROCHE-2547732

PATIENT
  Age: 42 Year
  Sex: Female

DRUGS (8)
  1. OCREVUS [Suspect]
     Active Substance: OCRELIZUMAB
     Indication: Relapsing-remitting multiple sclerosis
     Dosage: 300 MG AT DAY 0 AND 14, THEN 600 MG EVERY 6 MONTH
     Route: 042
     Dates: start: 20200131
  2. OCREVUS [Suspect]
     Active Substance: OCRELIZUMAB
     Dosage: 300 MG AT DAY 0 AND 14, THEN 600 MG EVERY 6 MONTH
     Route: 042
  3. IRON [Concomitant]
     Active Substance: IRON
  4. MINOXIDIL [Concomitant]
     Active Substance: MINOXIDIL
  5. NORETHINDRONE [Concomitant]
     Active Substance: NORETHINDRONE
     Dosage: BIRTH CONTROL (PROGESTERONE ONLY)
  6. TRANEXAMIC ACID [Concomitant]
     Active Substance: TRANEXAMIC ACID
     Dosage: - ONCE A MONTH WHEN SHE HAS PERIODS?TO PREVENT EXCESSIVE BLOOD LOSS
  7. MICRONOR [Concomitant]
     Active Substance: NORETHINDRONE
  8. EFFEXOR [Concomitant]
     Active Substance: VENLAFAXINE HYDROCHLORIDE

REACTIONS (20)
  - Cough [Recovered/Resolved]
  - Diarrhoea [Recovered/Resolved]
  - Nausea [Unknown]
  - Influenza [Not Recovered/Not Resolved]
  - Pain [Not Recovered/Not Resolved]
  - Pyrexia [Recovered/Resolved]
  - Myalgia [Not Recovered/Not Resolved]
  - Asthenia [Not Recovered/Not Resolved]
  - Fatigue [Not Recovered/Not Resolved]
  - Neutrophil count increased [Unknown]
  - Lymphocyte count increased [Unknown]
  - COVID-19 [Recovered/Resolved]
  - Persistent complex bereavement disorder [Unknown]
  - Nasopharyngitis [Recovering/Resolving]
  - Asthenia [Not Recovered/Not Resolved]
  - Red cell distribution width increased [Unknown]
  - Blood iron increased [Unknown]
  - Iron binding capacity total increased [Unknown]
  - Fall [Unknown]
  - Blood iron decreased [Unknown]

NARRATIVE: CASE EVENT DATE: 20200202
